FAERS Safety Report 7652570-8 (Version None)
Quarter: 2011Q3

REPORT INFORMATION
  Report Type: 
  Country: None (occurrence: None)
  Receive Date: 20110728
  Receipt Date: 20110713
  Transmission Date: 20111222
  Serious: Yes (Other)
  Sender: FDA-Public Use
  Company Number: 2011P1007754

PATIENT
  Age: 59 Year
  Sex: Female
  Weight: 78.0187 kg

DRUGS (2)
  1. FENTANYL [Suspect]
     Indication: PAIN
     Dosage: 100 MCG/HR; Q72HR; TDER
     Route: 062
     Dates: start: 20090701
  2. FENTANYL [Suspect]
     Indication: PAIN
     Dosage: 100 MCG/HR; Q72; TDER
     Route: 062
     Dates: start: 20090701

REACTIONS (8)
  - APPLICATION SITE ERYTHEMA [None]
  - APPLICATION SITE PRURITUS [None]
  - APPLICATION SITE SCAB [None]
  - APPLICATION SITE EXFOLIATION [None]
  - DEVICE LEAKAGE [None]
  - APPLICATION SITE BURN [None]
  - APPLICATION SITE PAIN [None]
  - WOUND [None]
